FAERS Safety Report 23470489 (Version 1)
Quarter: 2024Q1

REPORT INFORMATION
  Report Type: Spontaneous
  Country: US (occurrence: US)
  Receive Date: 20240202
  Receipt Date: 20240202
  Transmission Date: 20240410
  Serious: No
  Sender: FDA-Public Use
  Company Number: US-009507513-2401USA006616

PATIENT
  Sex: Female
  Weight: 38.549 kg

DRUGS (1)
  1. KEYTRUDA [Suspect]
     Active Substance: PEMBROLIZUMAB
     Indication: Recurrent cancer

REACTIONS (2)
  - Product prescribing issue [Unknown]
  - No adverse event [Unknown]
